FAERS Safety Report 8411603-1 (Version None)
Quarter: 2012Q2

REPORT INFORMATION
  Report Type: 
  Country: None (occurrence: None)
  Receive Date: 20120605
  Receipt Date: 20120511
  Transmission Date: 20120825
  Serious: No
  Sender: FDA-Public Use
  Company Number: US-AMGEN-USASP2012029890

PATIENT
  Age: 56 Year
  Sex: Male

DRUGS (1)
  1. ENBREL [Suspect]
     Indication: POLYMYOSITIS
     Dosage: 50 MG, QWK
     Dates: start: 20120101

REACTIONS (3)
  - RASH ERYTHEMATOUS [None]
  - FEELING OF BODY TEMPERATURE CHANGE [None]
  - PAIN [None]
